FAERS Safety Report 21799053 (Version 3)
Quarter: 2023Q1

REPORT INFORMATION
  Report Type: Report from Study
  Country: BR (occurrence: BR)
  Receive Date: 20221230
  Receipt Date: 20230330
  Transmission Date: 20230417
  Serious: Yes (Other)
  Sender: FDA-Public Use
  Company Number: BR-002147023-NVSC2022BR299397

PATIENT
  Age: 28 Year
  Sex: Female

DRUGS (2)
  1. RIBOCICLIB [Suspect]
     Active Substance: RIBOCICLIB
     Indication: Product used for unknown indication
     Dosage: UNK
     Route: 065
     Dates: start: 20221221
  2. RIBOCICLIB [Suspect]
     Active Substance: RIBOCICLIB
     Dosage: UNK
     Route: 065

REACTIONS (4)
  - Arrhythmia [Recovered/Resolved]
  - Weight increased [Unknown]
  - Heart rate increased [Recovered/Resolved]
  - Nausea [Recovered/Resolved]

NARRATIVE: CASE EVENT DATE: 20221221
